FAERS Safety Report 21284141 (Version 1)
Quarter: 2022Q3

REPORT INFORMATION
  Report Type: Spontaneous
  Country: JP (occurrence: JP)
  Receive Date: 20220902
  Receipt Date: 20220902
  Transmission Date: 20221027
  Serious: Yes (Life-Threatening, Hospitalization, Other)
  Sender: FDA-Public Use
  Company Number: JP-SUN PHARMACEUTICAL INDUSTRIES LTD-2022R1-353108

PATIENT
  Age: 60 Year
  Sex: Female

DRUGS (2)
  1. METHOTREXATE [Suspect]
     Active Substance: METHOTREXATE
     Indication: Cardiac sarcoidosis
     Dosage: 10 MILLIGRAM, DAILY
     Route: 065
  2. PREDNISOLONE [Suspect]
     Active Substance: PREDNISOLONE
     Indication: Cardiac sarcoidosis
     Dosage: UNK/INCREASED DOSE
     Route: 065

REACTIONS (2)
  - COVID-19 pneumonia [Recovered/Resolved]
  - Cardiac failure [Recovered/Resolved]
